FAERS Safety Report 8274856-9 (Version None)
Quarter: 2012Q2

REPORT INFORMATION
  Report Type: 
  Country: None (occurrence: None)
  Receive Date: 20120411
  Receipt Date: 20120403
  Transmission Date: 20120825
  Serious: Yes (Other)
  Sender: FDA-Public Use
  Company Number: US-JNJFOC-20120207515

PATIENT
  Sex: Female
  Weight: 92.53 kg

DRUGS (7)
  1. NUCYNTA ER [Suspect]
     Dosage: 2 TIMES DAILY
     Route: 048
     Dates: start: 20120111, end: 20120211
  2. PERCOCET [Interacting]
     Indication: FIBROMYALGIA
     Dosage: UPTO 5  DAILY
     Route: 065
  3. NUCYNTA ER [Suspect]
     Dosage: 2 TIMES DAILY
     Route: 048
     Dates: start: 20120111, end: 20120211
  4. NUCYNTA ER [Suspect]
     Indication: FIBROMYALGIA
     Dosage: 3 TIMES A DAY
     Route: 048
  5. PERCOCET [Interacting]
     Indication: BREAKTHROUGH PAIN
     Dosage: UPTO 5  DAILY
     Route: 065
  6. NUCYNTA ER [Suspect]
     Indication: PAIN
     Dosage: 3 TIMES A DAY
     Route: 048
  7. LOSARTAN POTASSIUM [Concomitant]
     Indication: HYPERTENSION
     Dosage: UPTO 5  DAILY
     Route: 065
     Dates: start: 20110831

REACTIONS (2)
  - HALLUCINATION, AUDITORY [None]
  - DRUG INTERACTION [None]
